FAERS Safety Report 18884171 (Version 2)
Quarter: 2024Q2

REPORT INFORMATION
  Report Type: Spontaneous
  Country: CA (occurrence: CA)
  Receive Date: 20210212
  Receipt Date: 20240502
  Transmission Date: 20240715
  Serious: Yes (Other)
  Sender: FDA-Public Use
  Company Number: CA-APOTEX-2021AP002531

PATIENT
  Sex: Female

DRUGS (4)
  1. TAMOXIFEN [Suspect]
     Active Substance: TAMOXIFEN
     Indication: Breast cancer metastatic
     Dosage: 200 MILLIGRAM, QD
     Route: 065
     Dates: start: 201901, end: 202010
  2. TAMOXIFEN [Suspect]
     Active Substance: TAMOXIFEN
     Dosage: 200 MILLIGRAM, QD
     Route: 065
     Dates: start: 201910, end: 202002
  3. CAPECITABINE [Suspect]
     Active Substance: CAPECITABINE
     Indication: Breast cancer metastatic
     Dosage: UNK
     Route: 065
     Dates: start: 201804, end: 201901
  4. CAPECITABINE [Suspect]
     Active Substance: CAPECITABINE
     Dosage: 1000 MILLIGRAM/SQ. METER X 14 DAY
     Route: 065
     Dates: start: 201910, end: 202002

REACTIONS (2)
  - Disease progression [Unknown]
  - Treatment failure [Unknown]
